FAERS Safety Report 17410496 (Version 1)
Quarter: 2020Q1

REPORT INFORMATION
  Report Type: Report from Study
  Country: IN (occurrence: IN)
  Receive Date: 20200212
  Receipt Date: 20200212
  Transmission Date: 20200409
  Serious: Yes (Other)
  Sender: FDA-Public Use
  Company Number: IN-MYLANLABS-2020M1015990

PATIENT
  Sex: Male

DRUGS (4)
  1. VINCRISTINE [Suspect]
     Active Substance: VINCRISTINE
     Indication: CONGENITAL RETINOBLASTOMA
     Dosage: ADJUNCT TREATMENT; VEC REGIMEN; ADMINISTERED FOR 6 CYCLES
     Route: 065
  2. MELPHALAN. [Suspect]
     Active Substance: MELPHALAN
     Indication: CONGENITAL RETINOBLASTOMA
     Dosage: ADMINISTERED FOR 5 CYCLES
     Route: 013
  3. CARBOPLATIN. [Suspect]
     Active Substance: CARBOPLATIN
     Indication: CONGENITAL RETINOBLASTOMA
     Dosage: ADJUNCT TREATMENT; VEC REGIMEN; ADMINISTERED FOR 6 CYCLES
     Route: 065
  4. ETOPOSIDE. [Suspect]
     Active Substance: ETOPOSIDE
     Indication: CONGENITAL RETINOBLASTOMA
     Dosage: ADJUNCT TREATMENT; VEC REGIMEN; ADMINISTERED FOR 6 CYCLES
     Route: 065

REACTIONS (2)
  - Arterial stenosis [Recovered/Resolved]
  - Pigmentation disorder [Unknown]
